FAERS Safety Report 5483848-4 (Version None)
Quarter: 2007Q4

REPORT INFORMATION
  Report Type: 
  Country: None (occurrence: None)
  Receive Date: 20071012
  Receipt Date: 20071010
  Transmission Date: 20080405
  Serious: Yes (Hospitalization)
  Sender: FDA-Public Use
  Company Number: FR-JNJFOC-20071002272

PATIENT
  Sex: Female

DRUGS (11)
  1. HALDOL FAIBLE [Suspect]
     Indication: DRUG USE FOR UNKNOWN INDICATION
     Route: 048
  2. MOTILIUM [Concomitant]
     Indication: DRUG USE FOR UNKNOWN INDICATION
  3. SOPROL [Concomitant]
     Indication: DRUG USE FOR UNKNOWN INDICATION
  4. LIPANTHYL [Concomitant]
     Indication: DRUG USE FOR UNKNOWN INDICATION
  5. PREVISCAN [Concomitant]
     Indication: DRUG USE FOR UNKNOWN INDICATION
  6. NITROGLYCERIN [Concomitant]
     Indication: DRUG USE FOR UNKNOWN INDICATION
  7. NOCTAMIDE [Concomitant]
     Indication: DRUG USE FOR UNKNOWN INDICATION
  8. ATARAX [Concomitant]
     Indication: DRUG USE FOR UNKNOWN INDICATION
  9. REMINYL [Concomitant]
     Indication: DRUG USE FOR UNKNOWN INDICATION
  10. LEVOTHYROX [Concomitant]
     Indication: DRUG USE FOR UNKNOWN INDICATION
  11. KARDEGIC [Concomitant]
     Indication: DRUG USE FOR UNKNOWN INDICATION

REACTIONS (1)
  - PULMONARY EMBOLISM [None]
